FAERS Safety Report 7277657-3 (Version None)
Quarter: 2010Q4

REPORT INFORMATION
  Report Type: 
  Country: None (occurrence: None)
  Receive Date: 20101215
  Receipt Date: 20100607
  Transmission Date: 20110411
  Serious: Yes (Other)
  Sender: FDA-Public Use
  Company Number: ENTC2010-0083

PATIENT
  Age: 70 Year
  Sex: Female

DRUGS (13)
  1. STALEVO 100 [Suspect]
     Indication: PARKINSON'S DISEASE
     Dosage: 500 MG, 4 IN 1 D, ORAL
     Route: 048
  2. MIRAPEX [Concomitant]
  3. LOVASTATIN [Concomitant]
  4. SERTRALINE HYDROCHLORIDE [Concomitant]
  5. LEVOXYL [Concomitant]
  6. SYMMETREL [Concomitant]
  7. PRILOSEC (OMEPRAZOLE) [Concomitant]
  8. RITUXIMAB (RITUXIMAB) [Concomitant]
  9. AMOXICILLIN [Concomitant]
  10. SIMVASTATIN [Concomitant]
  11. LISINOPRIL [Concomitant]
  12. CARVEDILOL [Concomitant]
  13. AMLODIPINE [Concomitant]

REACTIONS (2)
  - LEUKOPENIA [None]
  - THROMBOCYTOPENIA [None]
